FAERS Safety Report 5971941-9 (Version None)
Quarter: 2008Q4

REPORT INFORMATION
  Report Type: 
  Country: None (occurrence: None)
  Receive Date: 20081125
  Receipt Date: 20081114
  Transmission Date: 20090506
  Serious: Yes (Death)
  Sender: FDA-Public Use
  Company Number: 1-16853017/MED-08214

PATIENT
  Sex: Female

DRUGS (3)
  1. TRAZODONE HCL [Suspect]
     Dosage: ORAL
     Route: 048
  2. XANAX [Suspect]
     Dosage: ORAL
     Route: 048
  3. PROZAC [Suspect]
     Dosage: ORAL
     Route: 048

REACTIONS (1)
  - ROAD TRAFFIC ACCIDENT [None]
